FAERS Safety Report 16385550 (Version 1)
Quarter: 2019Q2

REPORT INFORMATION
  Report Type: Spontaneous
  Country: US (occurrence: US)
  Receive Date: 20190603
  Receipt Date: 20190603
  Transmission Date: 20190711
  Serious: No
  Sender: FDA-Public Use
  Company Number: US-GALDERMA-US18030619

PATIENT

DRUGS (1)
  1. DIFFERIN GEL [Suspect]
     Active Substance: ADAPALENE
     Indication: ACNE
     Route: 061
     Dates: start: 201803

REACTIONS (3)
  - Acne [Unknown]
  - Skin burning sensation [Unknown]
  - Dry skin [Unknown]

NARRATIVE: CASE EVENT DATE: 201803
